FAERS Safety Report 5627827-2 (Version None)
Quarter: 2008Q1

REPORT INFORMATION
  Report Type: 
  Country: None (occurrence: None)
  Receive Date: 20080214
  Receipt Date: 20080214
  Transmission Date: 20080703
  Serious: Yes (Life-Threatening, Hospitalization)
  Sender: FDA-Public Use
  Company Number: None

PATIENT
  Age: 66 Year
  Sex: Female

DRUGS (1)
  1. CELEBREX [Suspect]
     Indication: OSTEOARTHRITIS
     Dosage: 200MG DAILY ORAL
     Route: 048
     Dates: start: 20080121, end: 20080201

REACTIONS (2)
  - ACUTE RESPIRATORY DISTRESS SYNDROME [None]
  - RASH [None]
